FAERS Safety Report 10772084 (Version 8)
Quarter: 2022Q2

REPORT INFORMATION
  Report Type: Other
  Country: US (occurrence: US)
  Receive Date: 20150206
  Receipt Date: 20220624
  Transmission Date: 20220721
  Serious: Yes (Other)
  Sender: FDA-Public Use
  Company Number: US-ACORDA-ACO_104893_2014

PATIENT
  Sex: Female
  Weight: 72.109 kg

DRUGS (16)
  1. AMPYRA [Suspect]
     Active Substance: DALFAMPRIDINE
     Indication: Multiple sclerosis
     Dosage: 10 MILLIGRAM, BID
     Route: 048
  2. AMPYRA [Suspect]
     Active Substance: DALFAMPRIDINE
     Indication: Gait disturbance
     Dosage: 10 MG, Q 12 HRS
     Route: 048
     Dates: start: 2010
  3. AMPYRA [Suspect]
     Active Substance: DALFAMPRIDINE
     Dosage: 10 MG, BID
     Route: 048
     Dates: start: 2010
  4. AMPYRA [Suspect]
     Active Substance: DALFAMPRIDINE
     Dosage: 10 MG, BID
     Route: 048
     Dates: start: 201301
  5. AMPYRA [Suspect]
     Active Substance: DALFAMPRIDINE
     Dosage: 10MG BID
     Route: 048
     Dates: start: 20130701
  6. COPAXONE [Suspect]
     Active Substance: GLATIRAMER ACETATE
     Indication: Multiple sclerosis
     Dosage: 40 MG
     Route: 065
     Dates: start: 201403
  7. COPAXONE [Suspect]
     Active Substance: GLATIRAMER ACETATE
     Dosage: 20 MG
     Route: 065
  8. COPAXONE [Suspect]
     Active Substance: GLATIRAMER ACETATE
     Dosage: UNK
  9. AUBAGIO [Suspect]
     Active Substance: TERIFLUNOMIDE
     Indication: Multiple sclerosis
     Dosage: UNK
     Route: 048
  10. PROVIGIL [Suspect]
     Active Substance: MODAFINIL
     Indication: Fatigue
     Dosage: UNK
     Route: 065
  11. CORTICOSTEROID NOS [Concomitant]
     Active Substance: CORTICOSTEROID NOS
     Indication: Product used for unknown indication
     Dosage: UNK
     Route: 065
  12. ZYRTEC [Concomitant]
     Active Substance: CETIRIZINE HYDROCHLORIDE
     Indication: Product used for unknown indication
     Dosage: 10 MILLIGRAM
     Route: 065
  13. VITAMIN D [Concomitant]
     Active Substance: VITAMIN D NOS
     Indication: Product used for unknown indication
     Dosage: 100000/G POWDER
     Route: 065
  14. CALCIUM [Concomitant]
     Active Substance: CALCIUM
     Indication: Product used for unknown indication
     Dosage: UNK
     Route: 065
  15. B12 ACTIVE [Concomitant]
     Indication: Product used for unknown indication
     Dosage: UNKNOWN
     Route: 065
  16. CALTRATE WITH VITAMIN D [Concomitant]
     Active Substance: CALCIUM CARBONATE\CHOLECALCIFEROL
     Indication: Product used for unknown indication
     Dosage: UNK
     Route: 065

REACTIONS (21)
  - Ankle fracture [Recovering/Resolving]
  - Osteoporosis [Not Recovered/Not Resolved]
  - Condition aggravated [Not Recovered/Not Resolved]
  - Breast cancer [Unknown]
  - Ovarian cancer [Unknown]
  - Gait disturbance [Recovering/Resolving]
  - Palpitations [Unknown]
  - Injection site haemorrhage [Recovered/Resolved]
  - Contusion [Recovered/Resolved]
  - Injection site bruising [Recovering/Resolving]
  - Injection site pain [Recovering/Resolving]
  - Seasonal allergy [Unknown]
  - Injection site ulcer [Recovering/Resolving]
  - Erythema [Unknown]
  - Diarrhoea [Recovered/Resolved]
  - Injection site reaction [Unknown]
  - Therapeutic response unexpected [Unknown]
  - Weight decreased [Unknown]
  - Dyspnoea [Unknown]
  - Gait disturbance [Not Recovered/Not Resolved]
  - Constipation [Unknown]

NARRATIVE: CASE EVENT DATE: 20100101
